FAERS Safety Report 19847722 (Version 1)
Quarter: 2021Q3

REPORT INFORMATION
  Report Type: Spontaneous
  Country: DE (occurrence: DE)
  Receive Date: 20210917
  Receipt Date: 20210917
  Transmission Date: 20211014
  Serious: Yes (Hospitalization)
  Sender: FDA-Public Use
  Company Number: NVSC2021DE207636

PATIENT
  Age: 65 Year
  Sex: Male

DRUGS (1)
  1. BEOVU [Suspect]
     Active Substance: BROLUCIZUMAB-DBLL
     Indication: PRODUCT USED FOR UNKNOWN INDICATION
     Dosage: UNK
     Route: 065
     Dates: start: 20210112

REACTIONS (3)
  - Vasculitis [Recovered/Resolved with Sequelae]
  - Uveitis [Recovered/Resolved with Sequelae]
  - Retinal vascular occlusion [Recovered/Resolved with Sequelae]

NARRATIVE: CASE EVENT DATE: 20210114
